FAERS Safety Report 6167124-2 (Version None)
Quarter: 2009Q2

REPORT INFORMATION
  Report Type: 
  Country: None (occurrence: None)
  Receive Date: 20090424
  Receipt Date: 20090420
  Transmission Date: 20091009
  Serious: Yes (Hospitalization)
  Sender: FDA-Public Use
  Company Number: DE-BAYER-200917800GPV

PATIENT
  Age: 45 Year
  Sex: Female

DRUGS (2)
  1. BETAFERON [Suspect]
     Indication: MULTIPLE SCLEROSIS
     Dates: start: 20070604, end: 20090319
  2. PROPRANOLOL 80 RETARD [Concomitant]
     Indication: HYPERTENSION

REACTIONS (3)
  - HYPERTENSION [None]
  - HYPERTENSIVE CRISIS [None]
  - THYROID DISORDER [None]
